FAERS Safety Report 7998192-0 (Version None)
Quarter: 2011Q4

REPORT INFORMATION
  Report Type: 
  Country: None (occurrence: None)
  Receive Date: 20111221
  Receipt Date: 20110401
  Transmission Date: 20120403
  Serious: No
  Sender: FDA-Public Use
  Company Number: US-GLAXOSMITHKLINE-A0921114A

PATIENT
  Age: 56 Year
  Sex: Male

DRUGS (4)
  1. WELLBUTRIN [Concomitant]
  2. ANDROGEL [Concomitant]
  3. LOVAZA [Suspect]
     Indication: BLOOD TRIGLYCERIDES INCREASED
     Dosage: 4CAP PER DAY
     Route: 048
     Dates: start: 20101101, end: 20110401
  4. SINGULAIR [Concomitant]

REACTIONS (4)
  - LOW DENSITY LIPOPROTEIN INCREASED [None]
  - BLOOD CHOLESTEROL INCREASED [None]
  - BLOOD TRIGLYCERIDES INCREASED [None]
  - DRUG INEFFECTIVE [None]
